FAERS Safety Report 14816923 (Version 2)
Quarter: 2018Q2

REPORT INFORMATION
  Report Type: Spontaneous
  Country: AR (occurrence: AR)
  Receive Date: 20180426
  Receipt Date: 20180510
  Transmission Date: 20180711
  Serious: No
  Sender: FDA-Public Use
  Company Number: AR-PFIZER INC-2018169241

PATIENT
  Age: 45 Year
  Sex: Female

DRUGS (8)
  1. METFORMINE [Concomitant]
     Active Substance: METFORMIN HYDROCHLORIDE
     Dosage: UNK
     Dates: start: 2012
  2. VITAMINA D3 [Suspect]
     Active Substance: CHOLECALCIFEROL
     Indication: RHEUMATOID ARTHRITIS
     Dosage: 100 UL, UNK (100 UL, EVERY 15 DAYS)
  3. TOPIRAMATO [Concomitant]
     Active Substance: TOPIRAMATE
     Dosage: UNK
     Dates: start: 201801
  4. MEPREDNISONA [Suspect]
     Active Substance: MEPREDNISONE
     Indication: RHEUMATOID ARTHRITIS
     Dosage: 8 MG, 2X/DAY
  5. PILOCARPINA [Concomitant]
     Active Substance: PILOCARPINE HYDROCHLORIDE
     Dosage: UNK
     Dates: start: 2016
  6. GABAPENTIN. [Concomitant]
     Active Substance: GABAPENTIN
     Dosage: UNK
     Dates: start: 201801
  7. HYDROXYCHLOROQUINE [Suspect]
     Active Substance: HYDROXYCHLOROQUINE
     Indication: RHEUMATOID ARTHRITIS
     Dosage: 200 MG, 2X/DAY
  8. XELJANZ [Suspect]
     Active Substance: TOFACITINIB CITRATE
     Indication: RHEUMATOID ARTHRITIS
     Dosage: 5 MG, 2X/DAY
     Dates: start: 20170721

REACTIONS (1)
  - No adverse event [Unknown]
